FAERS Safety Report 11379701 (Version 11)
Quarter: 2020Q4

REPORT INFORMATION
  Report Type: Other
  Country: CA (occurrence: CA)
  Receive Date: 20150814
  Receipt Date: 20201118
  Transmission Date: 20210113
  Serious: Yes (Other)
  Sender: FDA-Public Use
  Company Number: CA-ROCHE-1615439

PATIENT
  Age: 70 Year
  Sex: Female
  Weight: 79.8 kg

DRUGS (22)
  1. ESBRIET [Suspect]
     Active Substance: PIRFENIDONE
     Route: 048
     Dates: start: 20150729
  2. JANUVIA [Concomitant]
     Active Substance: SITAGLIPTIN PHOSPHATE
  3. PREGABALIN. [Concomitant]
     Active Substance: PREGABALIN
  4. ESBRIET [Suspect]
     Active Substance: PIRFENIDONE
     Route: 048
     Dates: start: 20150723
  5. TRAVATAN [Concomitant]
     Active Substance: TRAVOPROST
  6. ESBRIET [Suspect]
     Active Substance: PIRFENIDONE
     Indication: IDIOPATHIC PULMONARY FIBROSIS
     Route: 048
     Dates: start: 20150714
  7. ESBRIET [Suspect]
     Active Substance: PIRFENIDONE
     Route: 048
     Dates: start: 20150810
  8. ESBRIET [Suspect]
     Active Substance: PIRFENIDONE
     Route: 048
     Dates: start: 2016
  9. ESBRIET [Suspect]
     Active Substance: PIRFENIDONE
     Indication: IDIOPATHIC PULMONARY FIBROSIS
     Route: 048
     Dates: start: 20150716
  10. ESBRIET [Suspect]
     Active Substance: PIRFENIDONE
     Dosage: 801MG-534MG-534MG
     Route: 048
     Dates: start: 20150824
  11. PANTOPRAZOLE [Concomitant]
     Active Substance: PANTOPRAZOLE
  12. ESBRIET [Suspect]
     Active Substance: PIRFENIDONE
     Dosage: 6-8 CAPSULES MG MILLIGRAM(S)
     Route: 048
     Dates: start: 201811
  13. FUROSEMIDE. [Concomitant]
     Active Substance: FUROSEMIDE
  14. PLAVIX [Concomitant]
     Active Substance: CLOPIDOGREL BISULFATE
  15. ADVAIR HFA [Concomitant]
     Active Substance: FLUTICASONE PROPIONATE\SALMETEROL XINAFOATE
  16. ESBRIET [Suspect]
     Active Substance: PIRFENIDONE
     Dosage: REDUCING ESBRIET DOSE TO 6-8 CAPS PER DAY; ONGOING
     Route: 048
     Dates: start: 2018
  17. CANDESARTAN. [Concomitant]
     Active Substance: CANDESARTAN
  18. ACETYLSALICYLIC ACID [Concomitant]
     Active Substance: ASPIRIN
  19. CRESTOR [Concomitant]
     Active Substance: ROSUVASTATIN CALCIUM
  20. RISEDRONATE [Concomitant]
     Active Substance: RISEDRONATE SODIUM
  21. ESBRIET [Suspect]
     Active Substance: PIRFENIDONE
     Dosage: 534MG-801MG-801MG
     Route: 048
     Dates: start: 20150901
  22. ESBRIET [Suspect]
     Active Substance: PIRFENIDONE
     Dosage: ONGOING; 8 PILLS/DAY
     Route: 048

REACTIONS (18)
  - Depression [Unknown]
  - Asthenia [Unknown]
  - Nausea [Recovering/Resolving]
  - Pulmonary function test decreased [Unknown]
  - Laziness [Unknown]
  - Urinary tract infection [Not Recovered/Not Resolved]
  - Lung diffusion test decreased [Unknown]
  - Vision blurred [Unknown]
  - Neck pain [Unknown]
  - Back pain [Unknown]
  - Muscle tightness [Unknown]
  - Abdominal pain upper [Not Recovered/Not Resolved]
  - Fatigue [Unknown]
  - Dizziness [Unknown]
  - Headache [Unknown]
  - Cough [Unknown]
  - Gastric disorder [Unknown]
  - Malaise [Not Recovered/Not Resolved]

NARRATIVE: CASE EVENT DATE: 20150724
